FAERS Safety Report 17896364 (Version 2)
Quarter: 2020Q3

REPORT INFORMATION
  Report Type: Spontaneous
  Country: FI (occurrence: FI)
  Receive Date: 20200615
  Receipt Date: 20200731
  Transmission Date: 20201103
  Serious: Yes (Other)
  Sender: FDA-Public Use
  Company Number: FI-SA-2020SA150626

PATIENT

DRUGS (13)
  1. KALCIPOS?D [Concomitant]
     Active Substance: CALCIUM CARBONATE\CHOLECALCIFEROL
     Dosage: 1 DF, QOD; 500 MG/400 IU
  2. AERIUS (DESLORATADINE) [Concomitant]
     Active Substance: DESLORATADINE
     Dosage: 5 MG, QD
  3. VITAMINS NOS [Concomitant]
     Active Substance: VITAMINS
     Dosage: 1 DF, QOD
     Dates: start: 2020
  4. SERETIDE [Concomitant]
     Active Substance: FLUTICASONE PROPIONATE\SALMETEROL XINAFOATE
     Dosage: 2 DF, BID; 25/250 MG
  5. LOMUDAL [Concomitant]
     Dosage: 1 DF, PRN;1 DOSE 1?2 TIMES PER DAY WHEN NEEDED
  6. TAPTIQOM [Concomitant]
     Active Substance: TAFLUPROST\TIMOLOL
     Dosage: 1 DF, QD; IN BOTH EYES
  7. ARCOXIA [Concomitant]
     Active Substance: ETORICOXIB
     Dosage: 120 MG, QD
  8. MONTELUKAST [Concomitant]
     Active Substance: MONTELUKAST SODIUM
     Dosage: 10 MG, QD
  9. DUPIXENT [Suspect]
     Active Substance: DUPILUMAB
     Indication: DERMATITIS ATOPIC
     Dosage: 300 MG, QOW
     Route: 058
     Dates: start: 20200214
  10. TRAMAL [Concomitant]
     Active Substance: TRAMADOL
     Dosage: 225 MG, BID
  11. ISPAGHULA EXTRACT\PSYLLIUM [Concomitant]
     Active Substance: HERBALS\PLANTAGO OVATA SEED\PLANTAGO SEED
     Dosage: 1 DF, QD; 1 DOSE BAG ONCE PER DAY
     Route: 065
  12. VITAMIN C [Concomitant]
     Active Substance: ASCORBIC ACID
     Dosage: 500 MG, QD
  13. VENTOLINE [SALBUTAMOL] [Concomitant]
     Active Substance: ALBUTEROL SULFATE
     Dosage: UNK UNK, BID; 1?2 DOSES TWICE PER DAY

REACTIONS (2)
  - Skin disorder [Unknown]
  - Erysipelas [Unknown]

NARRATIVE: CASE EVENT DATE: 20200505
